FAERS Safety Report 23145059 (Version 1)
Quarter: 2023Q4

REPORT INFORMATION
  Report Type: Spontaneous
  Country: US (occurrence: None)
  Receive Date: 20231103
  Receipt Date: 20231103
  Transmission Date: 20240110
  Serious: Yes (Hospitalization)
  Sender: FDA-Public Use
  Company Number: None

PATIENT
  Age: 61 Year
  Sex: Female

DRUGS (5)
  1. OPSUMIT [Suspect]
     Active Substance: MACITENTAN
     Indication: Pulmonary arterial hypertension
     Dosage: FREQUENCY : DAILY;?
     Route: 048
     Dates: start: 20230617
  2. FLOAN STERILE DILUENT [Concomitant]
  3. DEVICE [Concomitant]
     Active Substance: DEVICE
  4. TREPROSTINIL [Concomitant]
     Active Substance: TREPROSTINIL
  5. SILDENAFIL CITRATE [Concomitant]
     Active Substance: SILDENAFIL CITRATE

REACTIONS (2)
  - Catheter site discharge [None]
  - Pain [None]

NARRATIVE: CASE EVENT DATE: 20231102
